FAERS Safety Report 9238193 (Version 1)
Quarter: 2013Q1

REPORT INFORMATION
  Report Type: Spontaneous
  Country: US (occurrence: None)
  Receive Date: 20121107
  Receipt Date: 20121107
  Transmission Date: 20140127
  Serious: No
  Sender: FDA-Public Use
  Company Number: 2012HGS-003806

PATIENT
  Age: 52 Year
  Sex: Female
  Weight: 63.05 kg

DRUGS (7)
  1. BENLYSTA [Suspect]
     Indication: SYSTEMIC LUPUS ERYTHEMATOSUS
     Dosage: 1 IN 28 D
     Route: 041
     Dates: start: 20111019
  2. PLAQUENIL (HYDROXYCHLOROQUINE PHOSPHATE) (HYDROXYCHLOROQUINE PHOSPHATE) [Concomitant]
  3. LYRICA (PREGABALIN) (PREGABALIN) [Concomitant]
  4. MOTRIN (IBUPROFEN) (IBUPROFEN) [Concomitant]
  5. PROGESTERONE (PROGESTERONE) (PROGESTERONE) [Concomitant]
  6. DHEA (PRASTERONE) (PRASTERONE) [Concomitant]
  7. VITAMIN D3 (COLECALCIFEROL) (COLECALCIFEROL) [Concomitant]

REACTIONS (1)
  - Headache [None]
